FAERS Safety Report 16421646 (Version 1)
Quarter: 2019Q2

REPORT INFORMATION
  Report Type: Spontaneous
  Country: US (occurrence: US)
  Receive Date: 20190612
  Receipt Date: 20190612
  Transmission Date: 20190711
  Serious: Yes (Other)
  Sender: FDA-Public Use
  Company Number: US-GLAXOSMITHKLINE-US2019AMR104961

PATIENT

DRUGS (1)
  1. WELLBUTRIN [Suspect]
     Active Substance: BUPROPION HYDROCHLORIDE
     Indication: PRODUCT USED FOR UNKNOWN INDICATION
     Dosage: UNK
     Dates: start: 2017

REACTIONS (6)
  - Obsessive-compulsive disorder [Unknown]
  - Impulse-control disorder [Unknown]
  - Suicidal ideation [Unknown]
  - Ill-defined disorder [Unknown]
  - Attention deficit/hyperactivity disorder [Unknown]
  - Depression [Unknown]
